FAERS Safety Report 11804837 (Version 5)
Quarter: 2016Q2

REPORT INFORMATION
  Report Type: Report from Study
  Country: GB (occurrence: GB)
  Receive Date: 20151205
  Receipt Date: 20160411
  Transmission Date: 20160815
  Serious: Yes (Death, Life-Threatening, Hospitalization, Other)
  Sender: FDA-Public Use
  Company Number: GB-GLAXOSMITHKLINE-Z0022369A

PATIENT
  Age: 49 Year
  Sex: Male
  Weight: 74 kg

DRUGS (3)
  1. SANDO K [Concomitant]
     Indication: ELECTROLYTE SUBSTITUTION THERAPY
     Dosage: 3 DF, SINGLE
     Route: 048
     Dates: start: 20140329, end: 20140329
  2. PLACEBO [Suspect]
     Active Substance: UNSPECIFIED INGREDIENT
     Indication: TRANSPLANT REJECTION
     Dosage: UNK UNK, CYC
     Route: 042
     Dates: start: 20140313
  3. SANDO K [Concomitant]
     Indication: ELECTROLYTE SUBSTITUTION THERAPY
     Dosage: 3 DF, SINGLE
     Route: 048
     Dates: start: 20140323, end: 20140323

REACTIONS (4)
  - Acute myocardial infarction [Fatal]
  - Urinary tract infection [Fatal]
  - Pulmonary oedema [Unknown]
  - Cardiac failure acute [Fatal]

NARRATIVE: CASE EVENT DATE: 20140319
